FAERS Safety Report 8535431-1 (Version None)
Quarter: 2012Q3

REPORT INFORMATION
  Report Type: 
  Country: None (occurrence: None)
  Receive Date: 20120725
  Receipt Date: 20120711
  Transmission Date: 20120928
  Serious: No
  Sender: FDA-Public Use
  Company Number: ES-009507513-2012SP022950

PATIENT

DRUGS (6)
  1. LITHIUM CARBONATE [Concomitant]
     Dosage: UNK UNK, UNKNOWN
     Route: 048
  2. DEPAKENE [Concomitant]
     Dosage: UNK UNK, UNKNOWN
     Route: 048
  3. SYCREST [Suspect]
     Dosage: 5 MG, QD
     Route: 060
  4. QUETIAPINE FUMARATE [Concomitant]
     Dosage: 400 MG, QD
     Route: 048
  5. SYCREST [Suspect]
     Indication: BIPOLAR DISORDER
     Dosage: 5 MG, BID
     Route: 060
     Dates: start: 20120301, end: 20120401
  6. RIVASTIGMINE [Concomitant]
     Dosage: UNK UNK, UNKNOWN
     Route: 065

REACTIONS (1)
  - RASH [None]
